FAERS Safety Report 18211746 (Version 3)
Quarter: 2020Q4

REPORT INFORMATION
  Report Type: Spontaneous
  Country: FI (occurrence: FI)
  Receive Date: 20200831
  Receipt Date: 20201005
  Transmission Date: 20210113
  Serious: Yes (Hospitalization)
  Sender: FDA-Public Use
  Company Number: FI-ROCHE-2667233

PATIENT
  Age: 37 Year
  Sex: Female

DRUGS (10)
  1. SOLU-MEDROL [Concomitant]
     Active Substance: METHYLPREDNISOLONE SODIUM SUCCINATE
     Dosage: ONCE
     Route: 042
  2. OCREVUS [Suspect]
     Active Substance: OCRELIZUMAB
     Dosage: 350 ML OF THE TOTAL VOLUME OF 520 ML
     Route: 042
     Dates: start: 20200518
  3. PEPCID [Concomitant]
     Active Substance: FAMOTIDINE
     Dosage: ON INFUSION DAY
  4. PANADOL [Concomitant]
     Active Substance: ACETAMINOPHEN
     Indication: PREMEDICATION
     Dosage: TWICE ON INFUSION DAY AND DAY AFTER
  5. OCREVUS [Suspect]
     Active Substance: OCRELIZUMAB
     Route: 042
  6. HISTEC [Concomitant]
     Active Substance: CETIRIZINE HYDROCHLORIDE
     Dosage: ON INFUSION DAY
  7. SIRDALUD [Concomitant]
     Active Substance: TIZANIDINE
     Route: 048
  8. OCREVUS [Suspect]
     Active Substance: OCRELIZUMAB
     Route: 042
     Dates: start: 2019
  9. ACICLOVIR [Concomitant]
     Active Substance: ACYCLOVIR
     Dosage: 3 TIMES A DAY ON INFUSION DAY AND ONE MONTH AFTER THAT
  10. OCREVUS [Suspect]
     Active Substance: OCRELIZUMAB
     Indication: RELAPSING-REMITTING MULTIPLE SCLEROSIS
     Route: 042
     Dates: start: 20190508

REACTIONS (4)
  - Subcutaneous abscess [Recovered/Resolved]
  - Oral herpes [Recovered/Resolved]
  - Sinus tachycardia [Recovered/Resolved]
  - Blood pressure increased [Recovered/Resolved]

NARRATIVE: CASE EVENT DATE: 201908
